FAERS Safety Report 8340269-4 (Version None)
Quarter: 2012Q2

REPORT INFORMATION
  Report Type: 
  Country: None (occurrence: None)
  Receive Date: 20120507
  Receipt Date: 20120501
  Transmission Date: 20120825
  Serious: Yes (Hospitalization)
  Sender: FDA-Public Use
  Company Number: PHHY2010US85646

PATIENT
  Sex: Female

DRUGS (9)
  1. GILENYA [Suspect]
     Indication: MULTIPLE SCLEROSIS
     Dosage: 0.5 MG, UNK
     Route: 048
     Dates: start: 20101206
  2. SOMA [Concomitant]
  3. PREDNISONE [Concomitant]
  4. DEMEROL [Concomitant]
     Indication: SPINAL PAIN
  5. BETASERON [Concomitant]
  6. VALIUM [Concomitant]
  7. RESTORIL [Concomitant]
  8. TEGRETOL [Concomitant]
  9. CLONAZEPAM [Concomitant]
     Indication: BALANCE DISORDER

REACTIONS (9)
  - HYPERTENSION [None]
  - DRUG INTOLERANCE [None]
  - INFLUENZA [None]
  - CARDIAC FAILURE CONGESTIVE [None]
  - PRURITUS [None]
  - DIARRHOEA [None]
  - PNEUMONIA [None]
  - NASOPHARYNGITIS [None]
  - MALAISE [None]
